FAERS Safety Report 4370974-6 (Version None)
Quarter: 2004Q2

REPORT INFORMATION
  Report Type: 
  Country: None (occurrence: None)
  Receive Date: 20040601
  Receipt Date: 20040518
  Transmission Date: 20050107
  Serious: Yes (Other)
  Sender: FDA-Public Use
  Company Number: 2004214576GB

PATIENT
  Sex: Female

DRUGS (2)
  1. CYTOSAR-U [Suspect]
     Indication: ACUTE MYELOID LEUKAEMIA
     Dosage: UNK, 3 CYCLES, IV
     Route: 042
     Dates: start: 20031101, end: 20040301
  2. IDARUBICIN HCL [Suspect]
     Indication: ACUTE MYELOID LEUKAEMIA
     Dosage: UNK, 3 CYCLES, IV
     Route: 042
     Dates: start: 20031101, end: 20040301

REACTIONS (4)
  - BLINDNESS [None]
  - DEAFNESS [None]
  - MUSCULAR WEAKNESS [None]
  - NERVOUS SYSTEM DISORDER [None]
